FAERS Safety Report 11144327 (Version 1)
Quarter: 2015Q2

REPORT INFORMATION
  Report Type: Spontaneous
  Country: US (occurrence: US)
  Receive Date: 20150526
  Receipt Date: 20150526
  Transmission Date: 20150821
  Serious: No
  Sender: FDA-Public Use
  Company Number: US-PFIZER INC-2015169505

PATIENT
  Age: 79 Year
  Sex: Female

DRUGS (12)
  1. NORCO [Concomitant]
     Active Substance: ACETAMINOPHEN\HYDROCODONE BITARTRATE
     Indication: PAIN
     Dosage: 2 DF, EVERY 4 HRS (HYDROCODONE-10MG-ACETAMINOPHEN-325MG (AS NEEDED))
  2. HYDRODIURIL [Concomitant]
     Active Substance: HYDROCHLOROTHIAZIDE
     Dosage: 25 MG, DAILY
     Route: 048
  3. PYRIDIUM [Concomitant]
     Active Substance: PHENAZOPYRIDINE
     Indication: PAIN
     Dosage: 200 MG, 3X/DAY (AS NEEDED)
     Route: 048
  4. FLONASE [Concomitant]
     Active Substance: FLUTICASONE PROPIONATE
     Dosage: 50 ?G, DAILY (2 SPRAYS BY EACH NARE ROUTE)
     Route: 045
  5. ASPIRIN 81 [Concomitant]
     Dosage: 81 MG, DAILY
     Route: 048
  6. CALCIUM 600+VITAMIN D3 400 [Concomitant]
     Dosage: 1 DF, 2X/DAY (CALCIUM - 600 MG(1,500MG) -D3- 400 UNIT)
     Route: 048
  7. LYRICA [Suspect]
     Active Substance: PREGABALIN
     Indication: PAIN
     Dosage: 100 MG, 3X/DAY
     Route: 048
     Dates: start: 20150503
  8. AMBIEN [Concomitant]
     Active Substance: ZOLPIDEM TARTRATE
     Indication: INSOMNIA
     Dosage: 2.5 MG, AS NEEDED (NIGHTLY)
     Route: 048
  9. RANEXA [Concomitant]
     Active Substance: RANOLAZINE
     Dosage: 500 MG, 2X/DAY
     Route: 048
  10. LASIX [Concomitant]
     Active Substance: FUROSEMIDE
     Indication: OEDEMA
     Dosage: 20 MG, 1X/DAY (AS NEEDED)
     Route: 048
  11. LISINOPRIL. [Concomitant]
     Active Substance: LISINOPRIL
     Dosage: 40 MG, DAILY
     Route: 048
  12. GLUCOSAMINE + CHONDROITIN COMPLEX [Concomitant]
     Dosage: 1 DF, DAILY (GLUCOSAMINE-500MG-CHONDROITIN-400MG)
     Route: 048

REACTIONS (3)
  - Oedema [Unknown]
  - Pain [Unknown]
  - Insomnia [Unknown]
